FAERS Safety Report 6381834-3 (Version None)
Quarter: 2009Q3

REPORT INFORMATION
  Report Type: 
  Country: None (occurrence: None)
  Receive Date: 20090930
  Receipt Date: 20090923
  Transmission Date: 20100115
  Serious: No
  Sender: FDA-Public Use
  Company Number: US-JNJFOC-20090907266

PATIENT
  Sex: Male
  Weight: 86.18 kg

DRUGS (4)
  1. FENTANYL TRANSDERMAL SYSTEM [Suspect]
     Route: 062
     Dates: start: 20090801
  2. FENTANYL TRANSDERMAL SYSTEM [Suspect]
     Indication: BACK PAIN
     Route: 062
     Dates: start: 20090801
  3. FENTANYL TRANSDERMAL SYSTEM [Suspect]
     Indication: BACK PAIN
     Route: 062
  4. DILAUDID [Concomitant]
     Indication: BREAKTHROUGH PAIN
     Dosage: AS NECESSARY
     Route: 048

REACTIONS (4)
  - DRUG INEFFECTIVE [None]
  - HYPERHIDROSIS [None]
  - THERAPEUTIC RESPONSE DECREASED [None]
  - WRONG TECHNIQUE IN DRUG USAGE PROCESS [None]
